FAERS Safety Report 25812553 (Version 2)
Quarter: 2025Q3

REPORT INFORMATION
  Report Type: Spontaneous
  Country: EU (occurrence: EU)
  Receive Date: 20250917
  Receipt Date: 20250919
  Transmission Date: 20251020
  Serious: Yes (Hospitalization, Other)
  Sender: SANDOZ
  Company Number: EU-NOVPHSZ-PHHY2019RO142507

PATIENT
  Age: 42 Year
  Sex: Male

DRUGS (21)
  1. DASABUVIR\OMBITASVIR\PARITAPREVIR\RITONAVIR [Suspect]
     Active Substance: DASABUVIR\OMBITASVIR\PARITAPREVIR\RITONAVIR
     Indication: Chronic hepatitis C
     Route: 065
  2. INTERFERON [Suspect]
     Active Substance: INTERFERON
     Indication: Chronic hepatitis C
     Route: 065
  3. MYCOPHENOLATE MOFETIL [Suspect]
     Active Substance: MYCOPHENOLATE MOFETIL
     Indication: Immunosuppressant drug therapy
     Dosage: 1 MG, QD (FOR THE NEXT YEAR AND A HALF)
     Route: 065
  4. MYCOPHENOLATE MOFETIL [Suspect]
     Active Substance: MYCOPHENOLATE MOFETIL
     Indication: Renal transplant
     Dosage: 1.5 G, QD  (IN THE FIRST 6 MONTHS)
     Route: 065
  5. MYCOPHENOLATE MOFETIL [Suspect]
     Active Substance: MYCOPHENOLATE MOFETIL
     Indication: Immunosuppression
     Route: 065
  6. PREDNISONE [Suspect]
     Active Substance: PREDNISONE
     Indication: Renal transplant
     Dosage: 30 MG, QD (IN THE FIRST 6 MONTHS)
     Route: 065
  7. PREDNISONE [Suspect]
     Active Substance: PREDNISONE
     Indication: Immunosuppressant drug therapy
     Dosage: 5 MG, QD (FOR THE NEXT YEAR AND A HALF)
     Route: 065
  8. PREDNISONE [Suspect]
     Active Substance: PREDNISONE
     Indication: Immunosuppression
     Route: 065
  9. DASABUVIR [Interacting]
     Active Substance: DASABUVIR
     Indication: Chronic hepatitis C
     Dosage: IN THE MORNING AND EVENING, DURING MEALS.
     Route: 048
  10. DASABUVIR [Interacting]
     Active Substance: DASABUVIR
     Indication: Antiviral treatment
  11. DASABUVIR [Interacting]
     Active Substance: DASABUVIR
     Indication: Hepatitis C
  12. OMBITASVIR [Interacting]
     Active Substance: OMBITASVIR
     Indication: Chronic hepatitis C
     Route: 048
  13. OMBITASVIR [Interacting]
     Active Substance: OMBITASVIR
     Indication: Antiviral treatment
  14. PARITAPREVIR [Interacting]
     Active Substance: PARITAPREVIR
     Indication: Chronic hepatitis C
     Route: 048
  15. PARITAPREVIR [Interacting]
     Active Substance: PARITAPREVIR
     Indication: Antiviral treatment
  16. RITONAVIR [Interacting]
     Active Substance: RITONAVIR
     Indication: Chronic hepatitis C
     Route: 048
  17. RITONAVIR [Interacting]
     Active Substance: RITONAVIR
     Indication: Antiviral treatment
  18. TACROLIMUS [Interacting]
     Active Substance: TACROLIMUS
     Dosage: 10 MG, QD
     Route: 065
  19. TACROLIMUS [Interacting]
     Active Substance: TACROLIMUS
     Indication: Immunosuppression
     Dosage: 2 MG, QW
     Route: 065
  20. TACROLIMUS [Interacting]
     Active Substance: TACROLIMUS
     Indication: Chronic hepatitis C
     Dosage: 2 MG, QD
     Route: 065
  21. TACROLIMUS [Interacting]
     Active Substance: TACROLIMUS
     Indication: Immunosuppressant drug therapy
     Route: 065

REACTIONS (25)
  - Electrocardiogram T wave abnormal [Unknown]
  - Urine ketone body present [Recovered/Resolved]
  - Drug level increased [Recovered/Resolved]
  - Angina pectoris [Unknown]
  - Pruritus [Unknown]
  - Cardiac valve disease [Unknown]
  - Drug interaction [Recovered/Resolved]
  - Chronic hepatitis C [Recovered/Resolved]
  - Diabetes mellitus [Recovered/Resolved]
  - Infection reactivation [Recovered/Resolved]
  - Accidental overdose [Recovered/Resolved]
  - Anxiety [Recovered/Resolved]
  - Vision blurred [Recovered/Resolved]
  - Inappropriate schedule of product administration [Recovered/Resolved]
  - Drug level increased [Recovered/Resolved]
  - Immunosuppressant drug level increased [Recovered/Resolved]
  - Hyperglycaemia [Recovered/Resolved]
  - Fatigue [Unknown]
  - Thirst [Unknown]
  - Confusional state [Unknown]
  - Dry skin [Unknown]
  - Dry mouth [Unknown]
  - Nausea [Unknown]
  - Accidental overdose [Unknown]
  - Product use in unapproved indication [Unknown]
